FAERS Safety Report 5138983-7 (Version None)
Quarter: 2006Q4

REPORT INFORMATION
  Report Type: 
  Country: None (occurrence: None)
  Receive Date: 20061030
  Receipt Date: 20060530
  Transmission Date: 20070319
  Serious: No
  Sender: FDA-Public Use
  Company Number: US-GLAXOSMITHKLINE-A0607261A

PATIENT
  Age: 73 Year
  Sex: Male

DRUGS (5)
  1. ADVAIR HFA [Suspect]
     Indication: ASTHMA
     Dosage: 1PUFF TWICE PER DAY
     Route: 055
  2. NORVASC [Concomitant]
  3. ZOLOFT [Concomitant]
  4. DYAZIDE [Concomitant]
  5. PREVACID [Concomitant]

REACTIONS (1)
  - TOOTH DISORDER [None]
